FAERS Safety Report 7099781-0 (Version None)
Quarter: 2010Q4

REPORT INFORMATION
  Report Type: 
  Country: None (occurrence: None)
  Receive Date: 20101112
  Receipt Date: 20100622
  Transmission Date: 20110411
  Serious: Yes (Hospitalization)
  Sender: FDA-Public Use
  Company Number: US-JNJFOC-20100207576

PATIENT
  Sex: Female
  Weight: 58.97 kg

DRUGS (2)
  1. EXTRA STRENGTH TYLENOL [Suspect]
  2. EXTRA STRENGTH TYLENOL [Suspect]
     Indication: TOOTHACHE

REACTIONS (3)
  - PRODUCT QUALITY ISSUE [None]
  - PRODUCT TASTE ABNORMAL [None]
  - REACTION TO COLOURING [None]
